FAERS Safety Report 10082192 (Version 1)
Quarter: 2014Q2

REPORT INFORMATION
  Report Type: Spontaneous
  Country: CH (occurrence: CH)
  Receive Date: 20140416
  Receipt Date: 20140416
  Transmission Date: 20141212
  Serious: Yes (Hospitalization)
  Sender: FDA-Public Use
  Company Number: CH-BAYER-2014-052571

PATIENT
  Age: 86 Year
  Sex: Female

DRUGS (9)
  1. ASPIRIN CARDIO [Suspect]
     Dosage: 100 MG, QD
     Route: 048
  2. SINTROM [Suspect]
     Dosage: 1 MG, PRN
     Route: 048
  3. PLAVIX [Suspect]
     Dosage: 75 MG, QD
     Route: 048
  4. SEROQUEL [Suspect]
     Dosage: 6.25 MG, QD
     Route: 048
     Dates: end: 20140114
  5. TOREM [Concomitant]
  6. DIOVAN [Concomitant]
  7. BELOC [Concomitant]
  8. ZANIDIP [Concomitant]
  9. MADOPAR [Concomitant]

REACTIONS (3)
  - Anaemia [Recovering/Resolving]
  - Catheter site haematoma [Recovering/Resolving]
  - Leukopenia [Recovering/Resolving]
